FAERS Safety Report 4364978-7 (Version None)
Quarter: 2004Q2

REPORT INFORMATION
  Report Type: 
  Country: None (occurrence: None)
  Receive Date: 20040525
  Receipt Date: 20040525
  Transmission Date: 20050107
  Serious: Yes (Other)
  Sender: FDA-Public Use
  Company Number: None

PATIENT
  Age: 91 Year
  Sex: Male

DRUGS (15)
  1. VENOFER [Suspect]
     Indication: NEPHROGENIC ANAEMIA
     Dosage: 5CC IV Q WEEK
     Route: 042
     Dates: start: 20040317, end: 20040508
  2. ALLOPURINOL [Concomitant]
  3. IMDUR [Concomitant]
  4. PLENDIL [Concomitant]
  5. LORATADINE [Concomitant]
  6. PREVACID [Concomitant]
  7. SINGULAIR [Concomitant]
  8. PLAVIX [Concomitant]
  9. ADVAIR DISKUS 100/50 [Concomitant]
  10. COREG [Concomitant]
  11. XANAX [Concomitant]
  12. EPOGEN [Concomitant]
  13. PREDNISONE [Concomitant]
  14. MAGOX [Concomitant]
  15. ATROVENT [Concomitant]

REACTIONS (1)
  - CHROMATURIA [None]
